FAERS Safety Report 17771853 (Version 1)
Quarter: 2020Q2

REPORT INFORMATION
  Report Type: Other
  Country: FR (occurrence: FR)
  Receive Date: 20200512
  Receipt Date: 20200512
  Transmission Date: 20200714
  Serious: Yes (Death)
  Sender: FDA-Public Use
  Company Number: FR-DEXPHARM-20200206

PATIENT
  Age: 62 Year
  Sex: Male

DRUGS (7)
  1. CIPROFLOXACIN NON DEXCEL PRODUCT [Concomitant]
  2. PARACETAMOL-TRAMADOL [Concomitant]
  3. CEFOTAXIME [Concomitant]
     Active Substance: CEFOTAXIME SODIUM
  4. RIFAMPIN. [Concomitant]
     Active Substance: RIFAMPIN
  5. CEFTRIAXONE. [Suspect]
     Active Substance: CEFTRIAXONE
  6. DEXAMETHASONE. [Suspect]
     Active Substance: DEXAMETHASONE
     Dosage: DAILY DOSE: 40 MG MILLGRAM(S) EVERY DAYS
  7. VANCOMYCIN [Concomitant]
     Active Substance: VANCOMYCIN

REACTIONS (2)
  - Off label use [Unknown]
  - Delayed ischaemic neurological deficit [Fatal]
